FAERS Safety Report 12468308 (Version 1)
Quarter: 2016Q2

REPORT INFORMATION
  Report Type: Spontaneous
  Country: US (occurrence: US)
  Receive Date: 20160615
  Receipt Date: 20160615
  Transmission Date: 20160815
  Serious: No
  Sender: FDA-Public Use
  Company Number: US-JUBILANT CADISTA PHARMACEUTICALS-2015JUB00446

PATIENT
  Age: 41 Year
  Sex: Male
  Weight: 117.91 kg

DRUGS (7)
  1. CYCLOBENZAPRINE [Suspect]
     Active Substance: CYCLOBENZAPRINE
     Dosage: 10 MG, ONCE
     Dates: start: 20151225, end: 20151225
  2. XANAX [Concomitant]
     Active Substance: ALPRAZOLAM
     Dosage: 2 MG, 2X/DAY
  3. FISH OIL [Concomitant]
     Active Substance: FISH OIL
  4. MULTIVITAMIN [Concomitant]
     Active Substance: VITAMINS
  5. CYCLOBENZAPRINE [Suspect]
     Active Substance: CYCLOBENZAPRINE
     Indication: NECK PAIN
     Dosage: 10 MG, ONCE
     Route: 048
     Dates: start: 20151223, end: 20151223
  6. CYCLOBENZAPRINE [Suspect]
     Active Substance: CYCLOBENZAPRINE
     Dosage: 10 MG, 2X/DAY
     Dates: start: 20151224, end: 20151224
  7. VITAMIN D [Concomitant]
     Active Substance: CHOLECALCIFEROL

REACTIONS (3)
  - Inappropriate schedule of drug administration [Recovered/Resolved]
  - Drug ineffective [Recovered/Resolved]
  - Product substitution issue [Recovered/Resolved]

NARRATIVE: CASE EVENT DATE: 20151223
